FAERS Safety Report 4580484-9 (Version None)
Quarter: 2005Q1

REPORT INFORMATION
  Report Type: 
  Country: None (occurrence: None)
  Receive Date: 20050214
  Receipt Date: 20040205
  Transmission Date: 20050727
  Serious: Yes (Other)
  Sender: FDA-Public Use
  Company Number: US-GLAXOSMITHKLINE-A0496755A

PATIENT
  Age: 6 Year
  Sex: Female

DRUGS (3)
  1. LAMICTAL [Suspect]
     Dosage: 295MG PER DAY
     Route: 048
     Dates: start: 20020801
  2. SEPTRA [Concomitant]
  3. CARNITINE [Concomitant]

REACTIONS (4)
  - CONVULSION [None]
  - DRUG INEFFECTIVE [None]
  - EYE ROLLING [None]
  - NAUSEA [None]
